FAERS Safety Report 11080801 (Version 4)
Quarter: 2017Q2

REPORT INFORMATION
  Report Type: Spontaneous
  Country: FR (occurrence: FR)
  Receive Date: 20150501
  Receipt Date: 20170502
  Transmission Date: 20170829
  Serious: Yes (Congenital Anomaly, Other)
  Sender: FDA-Public Use
  Company Number: FR-SUN PHARMACEUTICAL INDUSTRIES LTD-2015R1-96543

PATIENT
  Age: 12 Year
  Sex: Male

DRUGS (1)
  1. VALPROIC ACID. [Suspect]
     Active Substance: VALPROIC ACID
     Indication: EPILEPSY
     Dosage: 1000 MG/J
     Route: 064
     Dates: start: 1978, end: 2011

REACTIONS (6)
  - Joint laxity [Unknown]
  - Deafness [Unknown]
  - Foetal exposure during pregnancy [Recovered/Resolved]
  - Hypospadias [Unknown]
  - Autism spectrum disorder [Unknown]
  - Visual impairment [Unknown]
